FAERS Safety Report 25241177 (Version 1)
Quarter: 2025Q2

REPORT INFORMATION
  Report Type: Spontaneous
  Country: GB (occurrence: GB)
  Receive Date: 20250425
  Receipt Date: 20250425
  Transmission Date: 20250717
  Serious: Yes (Other)
  Sender: TEVA
  Company Number: GB-PFIZER INC-PV202500047219

PATIENT
  Age: 41 Year
  Sex: Male

DRUGS (1)
  1. DOXORUBICIN [Suspect]
     Active Substance: DOXORUBICIN
     Indication: Rhabdomyosarcoma
     Route: 065
     Dates: start: 202405, end: 202407

REACTIONS (3)
  - Malignant neoplasm progression [Unknown]
  - Rhabdomyosarcoma [Unknown]
  - Metastases to lung [Unknown]
